FAERS Safety Report 24593022 (Version 1)
Quarter: 2024Q4

REPORT INFORMATION
  Report Type: Spontaneous
  Country: GB (occurrence: GB)
  Receive Date: 20241108
  Receipt Date: 20241108
  Transmission Date: 20250115
  Serious: Yes (Death, Other)
  Sender: PFIZER
  Company Number: GB-PFIZER INC-PV202400143800

PATIENT
  Age: 52 Year
  Sex: Female

DRUGS (5)
  1. IDARUBICIN HYDROCHLORIDE [Suspect]
     Active Substance: IDARUBICIN HYDROCHLORIDE
     Indication: B-cell type acute leukaemia
     Dosage: 8 MG/M2, COURSE ONE (THREE DOSES) CYCLIC
  2. CYTARABINE [Concomitant]
     Active Substance: CYTARABINE
     Indication: B-cell type acute leukaemia
     Dosage: 2 G/M2, COURSE ONE (FIVE DOSES), CYCLIC
  3. CYTARABINE [Concomitant]
     Active Substance: CYTARABINE
     Dosage: 2 G/M2, COURSE TWO (FIVE DOSES), CYCLIC
  4. FLUDARABINE [Concomitant]
     Active Substance: FLUDARABINE PHOSPHATE
     Indication: B-cell type acute leukaemia
     Dosage: 30 MG/M2, COURSE ONE (FIVE DOES), CYCLIC
  5. FLUDARABINE [Concomitant]
     Active Substance: FLUDARABINE PHOSPHATE
     Dosage: 30 MG/M2, COURSE TWO (FIVE DOES), CYCLIC

REACTIONS (1)
  - Right ventricular failure [Fatal]
